FAERS Safety Report 8237016-3 (Version None)
Quarter: 2012Q1

REPORT INFORMATION
  Report Type: 
  Country: None (occurrence: None)
  Receive Date: 20120327
  Receipt Date: 20120322
  Transmission Date: 20120608
  Serious: Yes (Life-Threatening)
  Sender: FDA-Public Use
  Company Number: PHEH2012US006475

PATIENT

DRUGS (1)
  1. SANDOSTATIN LAR [Suspect]
     Dosage: 150 UKN, UNK

REACTIONS (1)
  - SHOCK [None]
